FAERS Safety Report 20926433 (Version 3)
Quarter: 2022Q2

REPORT INFORMATION
  Report Type: Report from Study
  Country: CN (occurrence: CN)
  Receive Date: 20220607
  Receipt Date: 20220623
  Transmission Date: 20220720
  Serious: Yes (Hospitalization, Other)
  Sender: FDA-Public Use
  Company Number: CN-BRISTOL-MYERS SQUIBB COMPANY-2022-051143

PATIENT
  Age: 85 Year
  Sex: Male
  Weight: 75 kg

DRUGS (10)
  1. PLACEBO [Suspect]
     Active Substance: UNSPECIFIED INGREDIENT
     Indication: Prostate cancer
     Dosage: LAST DOSE RECEIVED ON 12-MAY-2022
     Route: 042
     Dates: start: 20220311
  2. DOCETAXEL [Suspect]
     Active Substance: DOCETAXEL
     Indication: Prostate cancer
     Dosage: LAST DOSE RECEIVED ON 12-MAY-2022
     Route: 065
     Dates: start: 20220311
  3. PREDNISONE [Suspect]
     Active Substance: PREDNISONE
     Indication: Prostate cancer
     Dosage: RECEIVED 5MG ON AN UNSPECIFIED DATE IN MAR-2022, 10 MG ON 29-MAR-2022, AND MOST RECENT DOSE RECEIVED
     Route: 065
     Dates: start: 20220311
  4. PREDNISONE [Suspect]
     Active Substance: PREDNISONE
     Dosage: 10 MG ON 29-MAR-2022, AND MOST RECENT DOSE RECEIVED ON 12-MAY-2022 (10 MG)
     Route: 065
     Dates: start: 20220329
  5. CALCIUM CARBONATE [Concomitant]
     Active Substance: CALCIUM CARBONATE
     Indication: Product used for unknown indication
     Dosage: ONGOING
     Route: 048
     Dates: start: 202012
  6. DEXAMETHASONE [Concomitant]
     Active Substance: DEXAMETHASONE
     Indication: Product used for unknown indication
     Route: 048
     Dates: start: 20220512, end: 20220512
  7. NIFEDIPINE [Concomitant]
     Active Substance: NIFEDIPINE
     Indication: Product used for unknown indication
     Dosage: NIFEDIPINE CONTROLLED-RELEASE TABLETS?ONGOING
     Route: 048
     Dates: start: 2018
  8. GLIPIZIDE [Concomitant]
     Active Substance: GLIPIZIDE
     Indication: Product used for unknown indication
     Dosage: GLIPIZIDE EXTENDED RELEASE TABLETS?ONGOING
     Route: 048
     Dates: start: 2018
  9. METFORMIN HYDROCHLORIDE [Concomitant]
     Active Substance: METFORMIN HYDROCHLORIDE
     Indication: Product used for unknown indication
     Dosage: ONGOING
     Route: 048
     Dates: start: 2018
  10. FAN XIE YE [Concomitant]
     Indication: Product used for unknown indication
     Dosage: UNK?ONGOING
     Route: 048
     Dates: start: 202012

REACTIONS (1)
  - Pneumonia [Recovering/Resolving]

NARRATIVE: CASE EVENT DATE: 20220526
